FAERS Safety Report 8211333-5 (Version None)
Quarter: 2012Q1

REPORT INFORMATION
  Report Type: 
  Country: None (occurrence: None)
  Receive Date: 20120229
  Receipt Date: 20110105
  Transmission Date: 20120608
  Serious: Yes (Other)
  Sender: FDA-Public Use
  Company Number: 302387

PATIENT
  Age: 77 Year
  Sex: Female
  Weight: 99.8 kg

DRUGS (2)
  1. NOVOLIN 70/30 [Suspect]
     Indication: TYPE 2 DIABETES MELLITUS
     Dosage: 26 UNITS AM + 28 UNITS PM, SUCBUTANEOUS
     Route: 058
     Dates: end: 20091001
  2. LANTUS OPTIPEN (INSULIN GLARGINE) [Concomitant]

REACTIONS (5)
  - DIZZINESS [None]
  - HYPOGLYCAEMIC UNCONSCIOUSNESS [None]
  - CHEST PAIN [None]
  - INCORRECT DOSE ADMINISTERED [None]
  - BLOOD GLUCOSE INCREASED [None]
